FAERS Safety Report 22293262 (Version 1)
Quarter: 2023Q2

REPORT INFORMATION
  Report Type: Spontaneous
  Country: US (occurrence: None)
  Receive Date: 20230508
  Receipt Date: 20230508
  Transmission Date: 20230721
  Serious: Yes (Other)
  Sender: FDA-Public Use
  Company Number: US-ROCHE-3343594

PATIENT
  Age: 67 Year
  Sex: Female

DRUGS (11)
  1. XELODA [Suspect]
     Active Substance: CAPECITABINE
     Indication: Breast cancer stage IV
     Route: 048
  2. HERCEPTIN [Suspect]
     Active Substance: TRASTUZUMAB
     Indication: Breast cancer stage IV
     Route: 048
  3. TUKYSA [Suspect]
     Active Substance: TUCATINIB
     Indication: Product used for unknown indication
     Dosage: TEMPORARILY TRY 50 MG LESS AT NIGHT/BID
     Route: 065
  4. COREG [Concomitant]
     Active Substance: CARVEDILOL
     Indication: Heart rate increased
  5. COREG [Concomitant]
     Active Substance: CARVEDILOL
  6. TELMISARTAN [Concomitant]
     Active Substance: TELMISARTAN
     Dosage: 20 MG IN A DAY
  7. ALDACTONE [Concomitant]
     Active Substance: SPIRONOLACTONE
     Dates: start: 20220122, end: 20220305
  8. LOPERAMIDE [Concomitant]
     Active Substance: LOPERAMIDE
  9. CEPHALEXIN [Concomitant]
     Active Substance: CEPHALEXIN
     Dosage: FOR 7 DAYS
  10. FLEXERIL [Concomitant]
     Active Substance: CYCLOBENZAPRINE HYDROCHLORIDE
  11. LOMOTIL [Concomitant]
     Active Substance: ATROPINE SULFATE\DIPHENOXYLATE HYDROCHLORIDE

REACTIONS (9)
  - Peripheral swelling [Unknown]
  - Palmar-plantar erythrodysaesthesia syndrome [Unknown]
  - Diarrhoea [Unknown]
  - Cyst [Unknown]
  - Postoperative wound infection [Unknown]
  - Melanocytic naevus [Unknown]
  - Sneezing [Unknown]
  - Rib fracture [Recovered/Resolved]
  - Dysplastic naevus [Unknown]

NARRATIVE: CASE EVENT DATE: 20210909
